FAERS Safety Report 6449939-6 (Version None)
Quarter: 2009Q4

REPORT INFORMATION
  Report Type: 
  Country: None (occurrence: None)
  Receive Date: 20091120
  Receipt Date: 20091120
  Transmission Date: 20100525
  Serious: Yes (Other)
  Sender: FDA-Public Use
  Company Number: None

PATIENT
  Sex: Male
  Weight: 122.0176 kg

DRUGS (8)
  1. FLOSEAL 10ML BAXTER [Suspect]
     Indication: ETHMOID SINUS SURGERY
     Dosage: 10ML ONCE TOP, 1 DOSE
     Route: 061
     Dates: start: 20091103, end: 20091103
  2. FLOSEAL 10ML BAXTER [Suspect]
     Indication: NASAL SEPTAL OPERATION
     Dosage: 10ML ONCE TOP, 1 DOSE
     Route: 061
     Dates: start: 20091103, end: 20091103
  3. FLOSEAL 10ML BAXTER [Suspect]
     Indication: TURBINECTOMY
     Dosage: 10ML ONCE TOP, 1 DOSE
     Route: 061
     Dates: start: 20091103, end: 20091103
  4. PROPAFOL [Concomitant]
  5. VERSED [Concomitant]
  6. ROCURONIUM BROMIDE [Concomitant]
  7. FENTANYL-100 [Concomitant]
  8. ULTANE [Concomitant]

REACTIONS (1)
  - HEART RATE DECREASED [None]
